FAERS Safety Report 9858314 (Version 1)
Quarter: 2014Q1

REPORT INFORMATION
  Report Type: Spontaneous
  Country: FR (occurrence: FR)
  Receive Date: 20140131
  Receipt Date: 20140131
  Transmission Date: 20141002
  Serious: Yes (Hospitalization)
  Sender: FDA-Public Use
  Company Number: FR-ELI_LILLY_AND_COMPANY-FR201401006608

PATIENT
  Age: 69 Year
  Sex: Male

DRUGS (8)
  1. ALIMTA [Suspect]
     Indication: PRODUCT USED FOR UNKNOWN INDICATION
     Dosage: 500 MG/M2, CYCLICAL
     Route: 042
  2. ALIMTA [Suspect]
     Dosage: 500 MG/M2, CYCLICAL
     Route: 042
     Dates: start: 20131010, end: 20131010
  3. CISPLATIN [Suspect]
     Indication: PRODUCT USED FOR UNKNOWN INDICATION
     Dosage: 1 DF, CYCLICAL
     Route: 042
  4. CISPLATIN [Suspect]
     Dosage: 1 DF, CYCLICAL
     Route: 042
     Dates: start: 20131010, end: 20131010
  5. AVASTIN                            /01555201/ [Concomitant]
     Dosage: UNK
  6. AVASTIN                            /01555201/ [Concomitant]
     Dosage: UNK
     Dates: start: 20131010
  7. XGEVA [Concomitant]
     Dosage: UNK, MONTHLY (1/M)
     Dates: start: 20131010
  8. NEULASTA [Concomitant]

REACTIONS (5)
  - General physical health deterioration [Unknown]
  - Febrile bone marrow aplasia [Recovered/Resolved]
  - Dyspnoea [Unknown]
  - Dizziness [Unknown]
  - Off label use [Recovered/Resolved]
